FAERS Safety Report 11269368 (Version 1)
Quarter: 2015Q3

REPORT INFORMATION
  Report Type: Spontaneous
  Country: US (occurrence: None)
  Receive Date: 20150713
  Receipt Date: 20150713
  Transmission Date: 20151125
  Serious: No
  Sender: FDA-Public Use
  Company Number: None

PATIENT
  Age: 67 Year
  Sex: Female
  Weight: 63.5 kg

DRUGS (1)
  1. LATANOPROST. [Suspect]
     Active Substance: LATANOPROST
     Indication: GLAUCOMA
     Route: 047
     Dates: start: 20150601, end: 20150707

REACTIONS (4)
  - Rash [None]
  - Product substitution issue [None]
  - Drug ineffective [None]
  - Pruritus [None]

NARRATIVE: CASE EVENT DATE: 20150701
